FAERS Safety Report 17418637 (Version 3)
Quarter: 2020Q1

REPORT INFORMATION
  Report Type: Report from Study
  Country: US (occurrence: US)
  Receive Date: 20200214
  Receipt Date: 20200306
  Transmission Date: 20200409
  Serious: Yes (Other)
  Sender: FDA-Public Use
  Company Number: NVSC2020US041053

PATIENT
  Age: 55 Year
  Sex: Male

DRUGS (3)
  1. VITAMINS NOS [Concomitant]
     Active Substance: VITAMINS
     Indication: PRODUCT USED FOR UNKNOWN INDICATION
     Dosage: UNK
     Route: 065
  2. MAYZENT [Suspect]
     Active Substance: SIPONIMOD
     Indication: MULTIPLE SCLEROSIS
     Dosage: UNK UNK, QD
     Route: 048
     Dates: start: 201912
  3. MAYZENT [Suspect]
     Active Substance: SIPONIMOD
     Dosage: UNK UNK, QD
     Route: 048
     Dates: start: 202001

REACTIONS (15)
  - Dysphagia [Unknown]
  - Head injury [Unknown]
  - Muscle spasms [Unknown]
  - Fatigue [Unknown]
  - Gait disturbance [Unknown]
  - Anxiety [Unknown]
  - Balance disorder [Unknown]
  - Cognitive disorder [Unknown]
  - Cough [Unknown]
  - Contusion [Unknown]
  - Hypoaesthesia [Unknown]
  - Memory impairment [Unknown]
  - Depression [Unknown]
  - Multiple sclerosis relapse [Unknown]
  - Pain [Unknown]

NARRATIVE: CASE EVENT DATE: 201912
